FAERS Safety Report 17985728 (Version 4)
Quarter: 2020Q3

REPORT INFORMATION
  Report Type: Spontaneous
  Country: TN (occurrence: TN)
  Receive Date: 20200706
  Receipt Date: 20200810
  Transmission Date: 20201103
  Serious: Yes (Death, Other)
  Sender: FDA-Public Use
  Company Number: TN-SA-2020SA172390

PATIENT

DRUGS (3)
  1. NORMOCARDIL [Concomitant]
     Dosage: 2 MG/KG, QD
  2. MYOZYME [Suspect]
     Active Substance: ALGLUCOSIDASE ALFA
     Indication: GLYCOGEN STORAGE DISEASE TYPE II
     Dosage: 20 MG/KG, QOW
     Route: 041
     Dates: start: 201910, end: 20200416
  3. PROPANOLOL [PROPRANOLOL] [Concomitant]
     Active Substance: PROPRANOLOL HYDROCHLORIDE
     Indication: HYPERTROPHIC CARDIOMYOPATHY
     Dosage: UNK
     Dates: start: 20191012, end: 20200607

REACTIONS (6)
  - Viral infection [Fatal]
  - Dyspnoea [Fatal]
  - Cardiac failure [Fatal]
  - Pyrexia [Fatal]
  - Arrhythmia [Fatal]
  - Pneumonia aspiration [Fatal]

NARRATIVE: CASE EVENT DATE: 20200605
